FAERS Safety Report 24934462 (Version 1)
Quarter: 2025Q1

REPORT INFORMATION
  Report Type: Report from Study
  Country: US (occurrence: US)
  Receive Date: 20250206
  Receipt Date: 20250206
  Transmission Date: 20250409
  Serious: No
  Sender: EXELIXIS
  Company Number: US-EXELIXIS-EXL-2024-002310

PATIENT
  Sex: Male

DRUGS (4)
  1. CABOMETYX [Suspect]
     Active Substance: CABOZANTINIB S-MALATE
     Indication: Renal cancer
     Dosage: 60 MG, QD
     Route: 048
     Dates: start: 202409
  2. INLYTA [Concomitant]
     Active Substance: AXITINIB
  3. ENBREL [Concomitant]
     Active Substance: ETANERCEPT
  4. OTEZLA [Concomitant]
     Active Substance: APREMILAST

REACTIONS (6)
  - Blister [Unknown]
  - Scrotal pain [Unknown]
  - Nausea [Unknown]
  - Diarrhoea [Unknown]
  - Fatigue [Unknown]
  - Dysgeusia [Unknown]
